FAERS Safety Report 9387486 (Version 4)
Quarter: 2013Q3

REPORT INFORMATION
  Report Type: Report from Study
  Country: US (occurrence: US)
  Receive Date: 20130708
  Receipt Date: 20130918
  Transmission Date: 20140515
  Serious: Yes (Other)
  Sender: FDA-Public Use
  Company Number: US-ROCHE-1145683

PATIENT
  Age: 66 Year
  Sex: Female

DRUGS (8)
  1. PEGASYS [Suspect]
     Indication: HEPATITIS C
     Route: 058
     Dates: end: 20120907
  2. PEGASYS [Suspect]
     Route: 058
     Dates: start: 20120907
  3. PEGASYS [Suspect]
     Route: 058
     Dates: end: 20130802
  4. RIBAVIRIN [Suspect]
     Indication: HEPATITIS C
     Dosage: DIVIDED DOSES
     Route: 048
     Dates: start: 20120907
  5. RIBAVIRIN [Suspect]
     Route: 065
  6. RIBAVIRIN [Suspect]
     Dosage: DIVIDED DOSE
     Route: 048
     Dates: start: 20120907, end: 20130802
  7. BOCEPREVIR [Suspect]
     Indication: HEPATITIS C
     Route: 065
     Dates: start: 20121005, end: 201305
  8. BIOTIN [Concomitant]
     Route: 065

REACTIONS (27)
  - Hepatic mass [Unknown]
  - Chills [Recovered/Resolved]
  - Cough [Recovering/Resolving]
  - Nasopharyngitis [Recovering/Resolving]
  - Cardiac flutter [Not Recovered/Not Resolved]
  - White blood cell count decreased [Not Recovered/Not Resolved]
  - Platelet count decreased [Not Recovered/Not Resolved]
  - Influenza like illness [Not Recovered/Not Resolved]
  - Alopecia [Not Recovered/Not Resolved]
  - Red blood cell count decreased [Not Recovered/Not Resolved]
  - Insomnia [Not Recovered/Not Resolved]
  - Tremor [Not Recovered/Not Resolved]
  - Vision blurred [Not Recovered/Not Resolved]
  - Disturbance in attention [Unknown]
  - Asthenia [Unknown]
  - Disorientation [Unknown]
  - Dysphagia [Unknown]
  - Vision blurred [Unknown]
  - Dizziness [Unknown]
  - Dyspnoea [Unknown]
  - Dry skin [Unknown]
  - Mass [Unknown]
  - Pruritus [Unknown]
  - Erythema [Unknown]
  - Dry mouth [Unknown]
  - Irritable bowel syndrome [Unknown]
  - Onychoclasis [Unknown]
